FAERS Safety Report 7413711-0 (Version None)
Quarter: 2011Q2

REPORT INFORMATION
  Report Type: 
  Country: None (occurrence: None)
  Receive Date: 20110413
  Receipt Date: 20110405
  Transmission Date: 20111010
  Serious: Yes (Other)
  Sender: FDA-Public Use
  Company Number: US-B.I. PHARMACEUTICALS,INC./RIDGEFIELD-2010-BP-14683BP

PATIENT
  Age: 81 Year
  Sex: Male
  Weight: 80.3 kg

DRUGS (8)
  1. PRADAXA [Suspect]
     Indication: ATRIAL FIBRILLATION
     Dosage: 300 MG
     Dates: start: 20101109
  2. ASPIRIN [Concomitant]
  3. RAPAFLO [Concomitant]
     Dosage: 8 MG
  4. SIMVASTATIN [Concomitant]
     Dosage: 40 MG
  5. ATACAND [Concomitant]
     Dosage: 16 MG
  6. CELEBREX [Concomitant]
     Dosage: 200 MG
  7. AVODART [Concomitant]
     Dosage: 5 MG
  8. METOPROLOL TARTRATE [Concomitant]
     Dosage: 50 MG

REACTIONS (2)
  - DIPLOPIA [None]
  - CEREBROVASCULAR ACCIDENT [None]
